FAERS Safety Report 4390669-2 (Version None)
Quarter: 2004Q3

REPORT INFORMATION
  Report Type: 
  Country: None (occurrence: None)
  Receive Date: 20040706
  Receipt Date: 20040402
  Transmission Date: 20050211
  Serious: Yes (Hospitalization)
  Sender: FDA-Public Use
  Company Number: US-MERCK-0404USA00767

PATIENT
  Age: 65 Year
  Sex: Female
  Weight: 70 kg

DRUGS (11)
  1. DARVOCET-N 100 [Concomitant]
     Route: 065
  2. AUGMENTIN [Concomitant]
     Indication: CELLULITIS
     Route: 065
     Dates: start: 20040311
  3. LIPITOR [Concomitant]
     Route: 065
  4. LOTENSIN [Concomitant]
     Route: 065
  5. LASIX [Concomitant]
     Route: 065
  6. LOPID [Concomitant]
     Route: 065
  7. GLYBURIDE [Concomitant]
     Route: 065
  8. GLUCOPHAGE [Concomitant]
     Route: 065
  9. MULTIVITAMIN [Concomitant]
     Route: 065
  10. ACTOS [Concomitant]
     Route: 065
  11. VIOXX [Suspect]
     Indication: PAIN IN EXTREMITY
     Route: 048
     Dates: start: 20040311, end: 20040301

REACTIONS (2)
  - CORONARY ARTERY DISEASE [None]
  - MYOCARDIAL INFARCTION [None]
